FAERS Safety Report 16941574 (Version 1)
Quarter: 2019Q4

REPORT INFORMATION
  Report Type: Spontaneous
  Country: US (occurrence: US)
  Receive Date: 20191021
  Receipt Date: 20191021
  Transmission Date: 20200122
  Serious: No
  Sender: FDA-Public Use
  Company Number: US-GLAXOSMITHKLINE-US2019188009

PATIENT
  Sex: Female

DRUGS (4)
  1. ABREVA [Suspect]
     Active Substance: DOCOSANOL
     Indication: ORAL DISORDER
  2. ABREVA [Suspect]
     Active Substance: DOCOSANOL
     Indication: ORAL PAIN
     Dosage: UNK
     Route: 065
     Dates: start: 2019
  3. TRELEGY ELLIPTA [Suspect]
     Active Substance: FLUTICASONE FUROATE\UMECLIDINIUM BROMIDE\VILANTEROL TRIFENATATE
     Indication: PRODUCT USED FOR UNKNOWN INDICATION
     Dosage: 1 PUFF(S), QD
     Route: 055
     Dates: start: 201903
  4. ABREVA [Suspect]
     Active Substance: DOCOSANOL
     Indication: ORAL INFECTION

REACTIONS (4)
  - Oral disorder [Unknown]
  - Oral pain [Not Recovered/Not Resolved]
  - Drug ineffective [Unknown]
  - Oral infection [Not Recovered/Not Resolved]

NARRATIVE: CASE EVENT DATE: 2019
